FAERS Safety Report 19106514 (Version 1)
Quarter: 2021Q2

REPORT INFORMATION
  Report Type: Spontaneous
  Country: US (occurrence: US)
  Receive Date: 20210407
  Receipt Date: 20210407
  Transmission Date: 20210717
  Serious: No
  Sender: FDA-Public Use
  Company Number: US-ORGANON-O2103USA001518

PATIENT
  Sex: Female

DRUGS (3)
  1. NEXPLANON [Suspect]
     Active Substance: ETONOGESTREL
     Dosage: 1 DOSAGE FORM;
     Route: 059
     Dates: end: 20210309
  2. NEXPLANON [Suspect]
     Active Substance: ETONOGESTREL
     Dosage: 1 DOSAGE FORM (PLACED IN FALL)
     Route: 059
     Dates: start: 2020
  3. NEXPLANON [Suspect]
     Active Substance: ETONOGESTREL
     Dosage: 1 DOSAGE FORM; RIGHT ARM
     Route: 059
     Dates: start: 2021

REACTIONS (4)
  - Contusion [Recovered/Resolved]
  - Medical device site discomfort [Not Recovered/Not Resolved]
  - Implant site hyperaesthesia [Recovering/Resolving]
  - Implant site pain [Not Recovered/Not Resolved]

NARRATIVE: CASE EVENT DATE: 202103
